FAERS Safety Report 23791457 (Version 1)
Quarter: 2024Q2

REPORT INFORMATION
  Report Type: Spontaneous
  Country: CN (occurrence: CN)
  Receive Date: 20240429
  Receipt Date: 20240429
  Transmission Date: 20240716
  Serious: Yes (Hospitalization, Other)
  Sender: FDA-Public Use
  Company Number: CN-NOVOPROD-1207365

PATIENT
  Age: 62 Year
  Sex: Female
  Weight: 69 kg

DRUGS (1)
  1. NOVORAPID [Suspect]
     Active Substance: INSULIN ASPART
     Indication: Type 2 diabetes mellitus
     Dosage: 44 IU, QD (16 U IN THE MORNING, 14 U AT NOON AND 14 U IN THE EVENING)

REACTIONS (3)
  - Stent placement [Unknown]
  - Hypertension [Unknown]
  - Nephropathy [Unknown]
